FAERS Safety Report 8891544 (Version 1)
Quarter: 2012Q4

REPORT INFORMATION
  Report Type: 
  Country: US (occurrence: US)
  Receive Date: 20121107
  Receipt Date: 20121107
  Transmission Date: 20130627
  Serious: No
  Sender: FDA-Public Use
  Company Number: US-AMGEN-USASP2011058886

PATIENT
  Age: 56 Year
  Sex: Female
  Weight: 165 kg

DRUGS (7)
  1. ENBREL [Suspect]
     Indication: PRODUCT USED FOR UNKNOWN INDICATION
     Dosage: 50 mg, qwk
     Route: 058
  2. COREG [Concomitant]
     Dosage: 12.5 mg, UNK
  3. NEURONTIN [Concomitant]
     Dosage: 100 mg, UNK
  4. ARAVA [Concomitant]
     Dosage: 10 mg, UNK
  5. ASPIRIN [Concomitant]
     Dosage: 81 mg, UNK
  6. FOLIC ACID [Concomitant]
     Dosage: 1 mg, UNK
  7. CALCIUM [Concomitant]

REACTIONS (1)
  - Nasopharyngitis [Unknown]
